FAERS Safety Report 9253492 (Version 1)
Quarter: 2013Q2

REPORT INFORMATION
  Report Type: Spontaneous
  Country: US (occurrence: US)
  Receive Date: 20130425
  Receipt Date: 20130425
  Transmission Date: 20140414
  Serious: No
  Sender: FDA-Public Use
  Company Number: US-009507513-1304USA014442

PATIENT
  Sex: Female

DRUGS (2)
  1. JANUMET [Suspect]
     Indication: TYPE 2 DIABETES MELLITUS
     Dosage: UNK
     Route: 048
  2. METFORMIN [Concomitant]
     Dosage: UNK

REACTIONS (2)
  - Rash generalised [Recovered/Resolved]
  - Rash generalised [Recovered/Resolved]
